FAERS Safety Report 20680449 (Version 1)
Quarter: 2022Q2

REPORT INFORMATION
  Report Type: Report from Study
  Country: US (occurrence: US)
  Receive Date: 20220406
  Receipt Date: 20220406
  Transmission Date: 20220721
  Serious: Yes (Other)
  Sender: FDA-Public Use
  Company Number: US-UCBSA-2022012718

PATIENT
  Age: 78 Year
  Sex: Male

DRUGS (2)
  1. ROTIGOTINE [Suspect]
     Active Substance: ROTIGOTINE
     Indication: Parkinson^s disease
     Dosage: 2MG 1 PATCH DAILY
  2. ROTIGOTINE [Suspect]
     Active Substance: ROTIGOTINE
     Dosage: DOUBLING UP ON 2MG PATCHES (4MG)
     Dates: start: 20220215

REACTIONS (2)
  - Bronchitis [Recovered/Resolved]
  - Laryngitis [Recovered/Resolved]

NARRATIVE: CASE EVENT DATE: 20220302
